FAERS Safety Report 9023471 (Version 1)
Quarter: 2013Q1

REPORT INFORMATION
  Report Type: Spontaneous
  Country: US (occurrence: US)
  Receive Date: 20130121
  Receipt Date: 20130121
  Transmission Date: 20140127
  Serious: No
  Sender: FDA-Public Use
  Company Number: US-OPTIMER PHARMACEUTICALS, INC.-20120076

PATIENT
  Sex: Female

DRUGS (1)
  1. DIFICID [Suspect]
     Indication: CLOSTRIDIAL INFECTION
     Dosage: UNK
     Route: 065
     Dates: start: 201205, end: 201205

REACTIONS (3)
  - Clostridium difficile infection [Unknown]
  - Disease recurrence [Unknown]
  - Drug ineffective [Unknown]
